FAERS Safety Report 15535139 (Version 2)
Quarter: 2018Q4

REPORT INFORMATION
  Report Type: Spontaneous
  Country: US (occurrence: US)
  Receive Date: 20181022
  Receipt Date: 20181210
  Transmission Date: 20190205
  Serious: No
  Sender: FDA-Public Use
  Company Number: US-BIOGEN-2018BI00647968

PATIENT
  Sex: Female

DRUGS (4)
  1. MARINOL [Concomitant]
     Active Substance: DRONABINOL
     Route: 048
  2. CYMBALTA [Concomitant]
     Active Substance: DULOXETINE HYDROCHLORIDE
     Route: 048
  3. TYSABRI [Suspect]
     Active Substance: NATALIZUMAB
     Indication: MULTIPLE SCLEROSIS
     Route: 065
     Dates: start: 20090803
  4. NORCO [Concomitant]
     Active Substance: ACETAMINOPHEN\HYDROCODONE BITARTRATE
     Route: 048

REACTIONS (5)
  - Migraine [Unknown]
  - Pain in extremity [Unknown]
  - Sleep disorder [Unknown]
  - Fatigue [Unknown]
  - Asthenopia [Unknown]
